FAERS Safety Report 9941247 (Version 1)
Quarter: 2014Q1

REPORT INFORMATION
  Report Type: Report from Study
  Country: US (occurrence: US)
  Receive Date: 20140303
  Receipt Date: 20140303
  Transmission Date: 20141002
  Serious: No
  Sender: FDA-Public Use
  Company Number: US-ABBVIE-13P-163-1042735-00

PATIENT
  Age: 21 Year
  Sex: Female

DRUGS (8)
  1. HUMIRA [Suspect]
     Indication: COLITIS ULCERATIVE
     Dosage: LOADING DOSE
     Dates: start: 20121231
  2. APRISO [Concomitant]
     Indication: COLITIS
     Dosage: 0.375 FOUR CAPSULES DAILY
  3. MULTIVITAMINS [Concomitant]
     Indication: NUTRITIONAL SUPPLEMENTATION
     Dosage: DAILY
  4. CALCIUM WITH VITAMIN D [Concomitant]
     Indication: NUTRITIONAL SUPPLEMENTATION
  5. POTASSIUM [Concomitant]
     Indication: HYPOKALAEMIA
  6. METOPROLOL [Concomitant]
     Indication: CARDIAC DISORDER
  7. IRON [Concomitant]
     Indication: NUTRITIONAL SUPPLEMENTATION
     Dosage: DAILY
  8. TYLENOL [Concomitant]
     Indication: PRODUCT USED FOR UNKNOWN INDICATION

REACTIONS (2)
  - Decreased appetite [Not Recovered/Not Resolved]
  - Back pain [Not Recovered/Not Resolved]
